FAERS Safety Report 20839322 (Version 1)
Quarter: 2022Q2

REPORT INFORMATION
  Report Type: Spontaneous
  Country: CA (occurrence: CA)
  Receive Date: 20220517
  Receipt Date: 20220517
  Transmission Date: 20220720
  Serious: Yes (Other)
  Sender: FDA-Public Use
  Company Number: CA-JNJFOC-20220522031

PATIENT
  Age: 59 Year
  Sex: Female

DRUGS (5)
  1. REMICADE [Suspect]
     Active Substance: INFLIXIMAB
     Indication: Crohn^s disease
     Route: 042
  2. ACETAMINOPHEN [Concomitant]
     Active Substance: ACETAMINOPHEN
     Indication: Premedication
     Route: 048
  3. DIPHENHYDRAMINE [Concomitant]
     Active Substance: DIPHENHYDRAMINE
     Indication: Premedication
     Route: 048
  4. ENTOCORT [Concomitant]
     Active Substance: BUDESONIDE
     Route: 048
  5. HYDROCORTISONE [Concomitant]
     Active Substance: HYDROCORTISONE
     Indication: Premedication
     Route: 042

REACTIONS (11)
  - Hypertrophy [Unknown]
  - Drug level below therapeutic [Unknown]
  - Drug level decreased [Unknown]
  - Oedema mucosal [Unknown]
  - Distal intestinal obstruction syndrome [Unknown]
  - Faecal calprotectin increased [Unknown]
  - Condition aggravated [Unknown]
  - Blood pressure fluctuation [Unknown]
  - Diarrhoea [Unknown]
  - Off label use [Unknown]
  - Inappropriate schedule of product administration [Unknown]
